FAERS Safety Report 7367291-9 (Version None)
Quarter: 2011Q1

REPORT INFORMATION
  Report Type: 
  Country: None (occurrence: None)
  Receive Date: 20110311
  Receipt Date: 20110228
  Transmission Date: 20110831
  Serious: Yes (Hospitalization)
  Sender: FDA-Public Use
  Company Number: B0703966A

PATIENT
  Age: 18 Month
  Sex: Male

DRUGS (1)
  1. ALBUTEROL SULFATE AUTOHALER [Suspect]
     Dosage: .4 MG/ML/ ORAL
     Route: 048

REACTIONS (11)
  - RESTLESSNESS [None]
  - ELECTROCARDIOGRAM T WAVE AMPLITUDE DECREASED [None]
  - LEUKOCYTOSIS [None]
  - TOXICITY TO VARIOUS AGENTS [None]
  - AGITATION [None]
  - SINUS TACHYCARDIA [None]
  - BLOOD GLUCOSE INCREASED [None]
  - BLOOD POTASSIUM DECREASED [None]
  - ACCIDENTAL DRUG INTAKE BY CHILD [None]
  - RESPIRATORY RATE INCREASED [None]
  - NEUTROPHILIA [None]
